FAERS Safety Report 6262283-5 (Version None)
Quarter: 2009Q3

REPORT INFORMATION
  Report Type: 
  Country: None (occurrence: None)
  Receive Date: 20090709
  Receipt Date: 20090627
  Transmission Date: 20100115
  Serious: Yes (Hospitalization)
  Sender: FDA-Public Use
  Company Number: US-PFIZER INC-2009233036

PATIENT
  Sex: Female
  Weight: 97.959 kg

DRUGS (2)
  1. BLINDED *PLACEBO [Suspect]
     Dosage: UNK
     Dates: start: 20090617, end: 20090624
  2. BLINDED ZIPRASIDONE HCL [Suspect]
     Dosage: UNK
     Dates: start: 20090617, end: 20090624

REACTIONS (1)
  - SUICIDAL IDEATION [None]
